FAERS Safety Report 6375501-X (Version None)
Quarter: 2009Q3

REPORT INFORMATION
  Report Type: 
  Country: None (occurrence: None)
  Receive Date: 20090924
  Receipt Date: 20090612
  Transmission Date: 20100115
  Serious: No
  Sender: FDA-Public Use
  Company Number: US-BAYER-200913977BCC

PATIENT
  Age: 3 Year
  Sex: Female

DRUGS (1)
  1. MIDOL [Suspect]
     Indication: ACCIDENTAL DRUG INTAKE BY CHILD
     Dosage: TOTAL DAILY DOSE: 220 MG  UNIT DOSE: 220 MG
     Route: 048
     Dates: start: 20090612, end: 20090612

REACTIONS (1)
  - NO ADVERSE EVENT [None]
